FAERS Safety Report 10244340 (Version 2)
Quarter: 2014Q2

REPORT INFORMATION
  Report Type: Spontaneous
  Country: US (occurrence: US)
  Receive Date: 20140618
  Receipt Date: 20140618
  Transmission Date: 20141212
  Serious: Yes (Hospitalization, Disabling, Other)
  Sender: FDA-Public Use
  Company Number: US-009507513-2011SP015421

PATIENT
  Sex: Female
  Weight: 67.13 kg

DRUGS (3)
  1. NUVARING [Suspect]
     Indication: CONTRACEPTION
     Dosage: UNK
     Route: 067
     Dates: start: 20060808, end: 20080425
  2. [COMPOSITION UNSPECIFIED] [Suspect]
     Indication: PRODUCT USED FOR UNKNOWN INDICATION
  3. PREDNISONE [Suspect]
     Indication: HEADACHE
     Dates: start: 200804

REACTIONS (14)
  - Peripheral artery thrombosis [Recovered/Resolved]
  - Hypercoagulation [Recovered/Resolved]
  - Haematoma [Unknown]
  - Hepatic lesion [Unknown]
  - Lymphadenopathy [Not Recovered/Not Resolved]
  - Emotional disorder [Unknown]
  - Mental disorder [Unknown]
  - C-reactive protein increased [Unknown]
  - Sinus tachycardia [Unknown]
  - Drug interaction [Unknown]
  - White blood cell count increased [Unknown]
  - Lymphoproliferative disorder [Unknown]
  - Conjunctivitis [Unknown]
  - Migraine [Unknown]
